FAERS Safety Report 17772989 (Version 3)
Quarter: 2020Q2

REPORT INFORMATION
  Report Type: Spontaneous
  Country: DE (occurrence: DE)
  Receive Date: 20200512
  Receipt Date: 20200619
  Transmission Date: 20200714
  Serious: No
  Sender: FDA-Public Use
  Company Number: DE-ACTELION-A-CH2020-204882

PATIENT

DRUGS (1)
  1. VELETRI [Suspect]
     Active Substance: EPOPROSTENOL
     Indication: LUNG TRANSPLANT
     Route: 042

REACTIONS (2)
  - No adverse event [Unknown]
  - Product use in unapproved indication [Unknown]
